FAERS Safety Report 5932965-0 (Version None)
Quarter: 2008Q4

REPORT INFORMATION
  Report Type: 
  Country: None (occurrence: None)
  Receive Date: 20081028
  Receipt Date: 20081007
  Transmission Date: 20090506
  Serious: Yes (Death, Disabling)
  Sender: FDA-Public Use
  Company Number: PHHY2008JP24569

PATIENT
  Age: 77 Year
  Sex: Male

DRUGS (10)
  1. DIOVAN [Suspect]
     Indication: HYPERTENSION
     Dosage: 80 MG, QD
     Route: 048
     Dates: start: 20071115
  2. LANSOPRAZOLE [Concomitant]
     Route: 048
  3. BENET [Concomitant]
     Route: 048
  4. PRAVASTATIN [Concomitant]
     Route: 048
  5. CLARUTE [Concomitant]
     Dosage: 60 MG
     Route: 048
  6. PIROAN [Concomitant]
     Dosage: UNK
     Route: 048
  7. NITOROL [Concomitant]
     Route: 065
  8. MERCAZOLE [Concomitant]
     Route: 065
  9. HARNAL D [Concomitant]
     Dosage: UNK
     Route: 065
  10. BOFU-TSUSHO-SAN [Concomitant]
     Route: 048

REACTIONS (5)
  - CAROTID ARTERY OCCLUSION [None]
  - CEREBRAL INFARCTION [None]
  - DUODENAL ULCER PERFORATION [None]
  - HAEMATEMESIS [None]
  - HEMIPLEGIA [None]
